FAERS Safety Report 24157108 (Version 8)
Quarter: 2025Q2

REPORT INFORMATION
  Report Type: Spontaneous
  Country: US (occurrence: US)
  Receive Date: 20240731
  Receipt Date: 20250519
  Transmission Date: 20250716
  Serious: Yes (Other)
  Sender: PFIZER
  Company Number: US-PFIZER INC-PV202400098179

PATIENT
  Age: 67 Year
  Sex: Female
  Weight: 73.8 kg

DRUGS (7)
  1. IBRANCE [Suspect]
     Active Substance: PALBOCICLIB
     Indication: Breast cancer female
     Dates: start: 20240128
  2. IBRANCE [Suspect]
     Active Substance: PALBOCICLIB
     Indication: Hormone receptor positive breast cancer
     Route: 048
  3. IBRANCE [Suspect]
     Active Substance: PALBOCICLIB
     Route: 048
     Dates: start: 20250127, end: 20250319
  4. FULVESTRANT [Concomitant]
     Active Substance: FULVESTRANT
     Dates: start: 20240128
  5. XANAX [Concomitant]
     Active Substance: ALPRAZOLAM
     Route: 048
  6. NEURONTIN [Concomitant]
     Active Substance: GABAPENTIN
     Dosage: 400 MG EVERY EVENING
     Route: 048
     Dates: end: 20250318
  7. FASLODEX [Concomitant]
     Active Substance: FULVESTRANT

REACTIONS (5)
  - Neutropenia [Unknown]
  - Immunodeficiency [Unknown]
  - Cancer pain [Unknown]
  - Fatigue [Unknown]
  - Product dispensing error [Unknown]
